FAERS Safety Report 6420558-0 (Version None)
Quarter: 2009Q4

REPORT INFORMATION
  Report Type: 
  Country: None (occurrence: None)
  Receive Date: 20091027
  Receipt Date: 20091016
  Transmission Date: 20100525
  Serious: Yes (Hospitalization)
  Sender: FDA-Public Use
  Company Number: US-000977

PATIENT
  Sex: Male
  Weight: 88.905 kg

DRUGS (6)
  1. DEGARELIX 240 MG [Suspect]
     Indication: PROSTATE CANCER
     Dosage: 240 MG TOTAL
     Dates: start: 20090814, end: 20090814
  2. LOTREL /012901-1/ (LOTREL) [Concomitant]
  3. TRICOR /00499301/ (TRICOR) [Concomitant]
  4. CRESTOR /01588601/ (CRESTOR) [Concomitant]
  5. ASPIRINE /00002701/ (ASPIRINE) [Concomitant]
  6. LEVOTHYROXINE [Concomitant]

REACTIONS (5)
  - CONSTIPATION [None]
  - DEHYDRATION [None]
  - PROCTITIS [None]
  - PROSTATITIS [None]
  - URINARY RETENTION [None]
